FAERS Safety Report 8533907 (Version 2)
Quarter: 2016Q4

REPORT INFORMATION
  Report Type: Report from Study
  Country: BG (occurrence: BG)
  Receive Date: 20120427
  Receipt Date: 20161028
  Transmission Date: 20170207
  Serious: Yes (Life-Threatening, Hospitalization)
  Sender: FDA-Public Use
  Company Number: BG-PFIZER INC-2012006691

PATIENT
  Age: 60 Year
  Sex: Male
  Weight: 84 kg

DRUGS (6)
  1. AXITINIB [Suspect]
     Active Substance: AXITINIB
     Indication: RENAL CANCER METASTATIC
     Dosage: 10 MG, 2X/DAY
     Route: 048
     Dates: start: 20110315, end: 20111126
  2. FOKUSIN [Concomitant]
     Active Substance: TAMSULOSIN
     Indication: BENIGN PROSTATIC HYPERPLASIA
     Dosage: 0.4 MG, UNK
     Dates: start: 20120103
  3. DICYNONE [Concomitant]
     Active Substance: ETHAMSYLATE
     Indication: HAEMATURIA
     Dosage: 500 MG, UNK
     Dates: start: 20111220, end: 20120106
  4. DURACEF [Concomitant]
     Active Substance: CEFADROXIL
     Indication: EPIDIDYMITIS
     Dosage: 1000 MG, UNK
     Dates: start: 20120103, end: 20120106
  5. AXITINIB [Suspect]
     Active Substance: AXITINIB
     Dosage: 10 MG, 2X/DAY
     Route: 048
     Dates: start: 20111203, end: 20111226
  6. VITAMIN C [Concomitant]
     Active Substance: ASCORBIC ACID
     Indication: HAEMATURIA
     Dosage: 1000 MG, UNK
     Dates: start: 20111220, end: 20120106

REACTIONS (1)
  - Retroperitoneal haematoma [Recovered/Resolved]

NARRATIVE: CASE EVENT DATE: 20120106
